FAERS Safety Report 22400736 (Version 6)
Quarter: 2023Q4

REPORT INFORMATION
  Report Type: Spontaneous
  Country: US (occurrence: US)
  Receive Date: 20230602
  Receipt Date: 20231115
  Transmission Date: 20240110
  Serious: No
  Sender: FDA-Public Use
  Company Number: US-PFIZER INC-PV202300092365

PATIENT
  Age: 58 Year
  Sex: Female

DRUGS (2)
  1. IBRANCE [Suspect]
     Active Substance: PALBOCICLIB
     Dosage: 125 MG, 1 FOR 1 DAY ON WK1,1 FOR 2 DAYS ON WK2,1 FOR 3 DAYS ON WK3,AND SO ON UNTIL 1 DAILY
  2. IBRANCE [Suspect]
     Active Substance: PALBOCICLIB
     Dosage: 3 DF, WEEKLY

REACTIONS (3)
  - Alopecia [Recovered/Resolved]
  - Fatigue [Unknown]
  - Off label use [Unknown]
